FAERS Safety Report 19410990 (Version 3)
Quarter: 2021Q4

REPORT INFORMATION
  Report Type: Spontaneous
  Country: US (occurrence: US)
  Receive Date: 20210614
  Receipt Date: 20211015
  Transmission Date: 20220303
  Serious: Yes (Other)
  Sender: FDA-Public Use
  Company Number: US-ROCHE-2848155

PATIENT
  Sex: Female

DRUGS (2)
  1. OCREVUS [Suspect]
     Active Substance: OCRELIZUMAB
     Indication: Multiple sclerosis
     Dosage: 300 MG/10 ML SDV
     Route: 042
     Dates: start: 20200421
  2. OCREVUS [Suspect]
     Active Substance: OCRELIZUMAB
     Dosage: STRENGTH: 300 MG/10 ML
     Route: 042
     Dates: start: 202004

REACTIONS (3)
  - Multiple sclerosis relapse [Unknown]
  - Photophobia [Unknown]
  - Fatigue [Unknown]
